FAERS Safety Report 4694869-3 (Version None)
Quarter: 2005Q2

REPORT INFORMATION
  Report Type: 
  Country: None (occurrence: None)
  Receive Date: 20050617
  Receipt Date: 20050602
  Transmission Date: 20051028
  Serious: Yes (Other)
  Sender: FDA-Public Use
  Company Number: 430031N05USA

PATIENT
  Age: 40 Year
  Sex: Female
  Weight: 62.6 kg

DRUGS (1)
  1. NOVANTRONE [Suspect]
     Indication: MULTIPLE SCLEROSIS
     Dosage: 1 IN 3 MONTHS, INTRAVENOUS (NOT OTHERWISE SPECIFIED)
     Route: 042
     Dates: start: 20010918, end: 20031201

REACTIONS (1)
  - CARDIOMYOPATHY [None]
